FAERS Safety Report 4574759-7 (Version None)
Quarter: 2005Q1

REPORT INFORMATION
  Report Type: 
  Country: None (occurrence: None)
  Receive Date: 20050208
  Receipt Date: 20040615
  Transmission Date: 20050727
  Serious: No
  Sender: FDA-Public Use
  Company Number: US-GLAXOSMITHKLINE-A0514703A

PATIENT
  Sex: Female

DRUGS (2)
  1. PAXIL CR [Suspect]
     Route: 048
  2. AMITRIPTYLINE [Concomitant]

REACTIONS (2)
  - ADVERSE EVENT [None]
  - ANTIDEPRESSANT DRUG LEVEL INCREASED [None]
